FAERS Safety Report 13830894 (Version 2)
Quarter: 2017Q3

REPORT INFORMATION
  Report Type: Report from Study
  Country: US (occurrence: US)
  Receive Date: 20170803
  Receipt Date: 20170906
  Transmission Date: 20171127
  Serious: Yes (Hospitalization)
  Sender: FDA-Public Use
  Company Number: US-ACTELION-A-US2017-157448

PATIENT
  Age: 77 Year
  Sex: Male

DRUGS (29)
  1. SPIRONOLACTONE. [Concomitant]
     Active Substance: SPIRONOLACTONE
  2. AMLODIPINE [Concomitant]
     Active Substance: AMLODIPINE BESYLATE
  3. BRILINTA [Concomitant]
     Active Substance: TICAGRELOR
  4. INCRUSE ELLIPTA [Concomitant]
     Active Substance: UMECLIDINIUM BROMIDE
  5. ROPINIROLE. [Concomitant]
     Active Substance: ROPINIROLE
  6. WELCHOL [Concomitant]
     Active Substance: COLESEVELAM HYDROCHLORIDE
  7. TEMAZEPAM. [Concomitant]
     Active Substance: TEMAZEPAM
  8. LANTUS [Concomitant]
     Active Substance: INSULIN GLARGINE
  9. ZOLPIDEM [Concomitant]
     Active Substance: ZOLPIDEM\ZOLPIDEM TARTRATE
  10. METOLAZONE. [Concomitant]
     Active Substance: METOLAZONE
  11. TRAMADOL. [Concomitant]
     Active Substance: TRAMADOL
  12. BUMETANIDE. [Concomitant]
     Active Substance: BUMETANIDE
  13. OPSUMIT [Suspect]
     Active Substance: MACITENTAN
     Indication: PULMONARY ARTERIAL HYPERTENSION
     Dosage: 10 MG, QD
     Route: 048
     Dates: start: 20170728
  14. AMIODARONE [Concomitant]
     Active Substance: AMIODARONE
  15. ATORVASTATIN [Concomitant]
     Active Substance: ATORVASTATIN
  16. BENAZEPRIL [Concomitant]
     Active Substance: BENAZEPRIL HYDROCHLORIDE
  17. KCL [Concomitant]
     Active Substance: POTASSIUM CHLORIDE
  18. FENOFIBRATE. [Concomitant]
     Active Substance: FENOFIBRATE
  19. FLUTICASONE. [Concomitant]
     Active Substance: FLUTICASONE
  20. PROCTOZONE HC [Concomitant]
     Active Substance: HYDROCORTISONE
  21. PLAVIX [Concomitant]
     Active Substance: CLOPIDOGREL BISULFATE
  22. HCTZ [Concomitant]
     Active Substance: HYDROCHLOROTHIAZIDE
  23. CARVEDILOL. [Concomitant]
     Active Substance: CARVEDILOL
  24. SYMBICORT [Concomitant]
     Active Substance: BUDESONIDE\FORMOTEROL FUMARATE DIHYDRATE
  25. TIZANIDINE. [Concomitant]
     Active Substance: TIZANIDINE
  26. TORSEMIDE. [Concomitant]
     Active Substance: TORSEMIDE
  27. FUROSEMIDE. [Concomitant]
     Active Substance: FUROSEMIDE
  28. AZELASTINE [Concomitant]
     Active Substance: AZELASTINE
  29. GABAPENTIN. [Concomitant]
     Active Substance: GABAPENTIN

REACTIONS (1)
  - Infection [Unknown]
